FAERS Safety Report 5669681-9 (Version None)
Quarter: 2008Q1

REPORT INFORMATION
  Report Type: 
  Country: None (occurrence: None)
  Receive Date: 20080312
  Receipt Date: 20080312
  Transmission Date: 20080703
  Serious: Yes (Life-Threatening)
  Sender: FDA-Public Use
  Company Number: None

PATIENT
  Age: 66 Year
  Sex: Female
  Weight: 69 kg

DRUGS (11)
  1. WARFARIN SODIUM [Suspect]
     Indication: ATRIAL FIBRILLATION
     Dosage: PER MD BASED ON INR DAILY PO
     Route: 048
     Dates: start: 20080229, end: 20080307
  2. ASPIRIN [Suspect]
     Indication: ATRIAL FIBRILLATION
     Dosage: ASPIRIN 81 MG DAILY PO
     Route: 048
  3. CEFTAZIDIME SODIUM [Concomitant]
  4. DIGOXIN [Concomitant]
  5. DILTIAZEM CD [Concomitant]
  6. FLUCONAZOLE [Concomitant]
  7. LINEZOLID [Concomitant]
  8. METOPROLOL TARTRATE [Concomitant]
  9. METRONIDAZOLE HCL [Concomitant]
  10. OMEPRAZOLE [Concomitant]
  11. VANCOMYCIN [Concomitant]

REACTIONS (6)
  - ATRIAL FIBRILLATION [None]
  - GASTRIC ULCER [None]
  - HAEMOGLOBIN DECREASED [None]
  - HYPOKALAEMIA [None]
  - HYPOTENSION [None]
  - PYREXIA [None]
